FAERS Safety Report 8831525 (Version 3)
Quarter: 2012Q4

REPORT INFORMATION
  Report Type: 
  Country: JP (occurrence: JP)
  Receive Date: 20121008
  Receipt Date: 20121030
  Transmission Date: 20130627
  Serious: No
  Sender: FDA-Public Use
  Company Number: JP-GLAXOSMITHKLINE-B0835716A

PATIENT
  Age: 29 Year
  Sex: Female

DRUGS (3)
  1. PAXIL [Suspect]
     Indication: OBSESSIVE-COMPULSIVE DISORDER
     Route: 048
     Dates: start: 20120905, end: 20121016
  2. PAXIL [Concomitant]
     Indication: OBSESSIVE-COMPULSIVE DISORDER
     Route: 048
     Dates: end: 20120905
  3. ABILIFY [Concomitant]
     Indication: OBSESSIVE-COMPULSIVE DISORDER
     Dosage: 3MG Per day
     Route: 048
     Dates: start: 2010

REACTIONS (4)
  - Cough [Recovering/Resolving]
  - Oral pain [Recovering/Resolving]
  - Nasopharyngitis [Recovering/Resolving]
  - Tremor [Recovering/Resolving]
